FAERS Safety Report 18289059 (Version 1)
Quarter: 2020Q3

REPORT INFORMATION
  Report Type: Spontaneous
  Country: US (occurrence: US)
  Receive Date: 20200921
  Receipt Date: 20200921
  Transmission Date: 20201103
  Serious: No
  Sender: FDA-Public Use
  Company Number: None

PATIENT
  Sex: Female

DRUGS (22)
  1. LEVOTHYROXINE SODIUM. [Concomitant]
     Active Substance: LEVOTHYROXINE SODIUM
  2. ECHINACEA [Concomitant]
     Active Substance: ECHINACEA, UNSPECIFIED
  3. FISH OIL [Concomitant]
     Active Substance: FISH OIL
  4. CEFPODOXIME PROXETIL. [Concomitant]
     Active Substance: CEFPODOXIME PROXETIL
  5. LIOTHYRONINE [Concomitant]
     Active Substance: LIOTHYRONINE
  6. VITAMIN  A [Concomitant]
     Active Substance: VITAMIN A
  7. COENZYME Q10 [Concomitant]
     Active Substance: DIETARY SUPPLEMENT\UBIDECARENONE
  8. AMBRISENTAN 10MG TAB [Suspect]
     Active Substance: AMBRISENTAN
     Indication: PULMONARY ARTERIAL HYPERTENSION
     Route: 048
  9. BUMETANIDE. [Concomitant]
     Active Substance: BUMETANIDE
  10. VITAMIN E [Concomitant]
     Active Substance: .ALPHA.-TOCOPHEROL
  11. HYDROCORTISONE. [Concomitant]
     Active Substance: HYDROCORTISONE
  12. VITAMIN C [Concomitant]
     Active Substance: ASCORBIC ACID
  13. VITAMIN K [Concomitant]
     Active Substance: PHYTONADIONE
  14. ZINC. [Concomitant]
     Active Substance: ZINC
  15. MULTI VITAMIN DAILY [Concomitant]
  16. MAGNESIUM [Concomitant]
     Active Substance: MAGNESIUM
  17. OIL OF OREGANO [Concomitant]
  18. TADALAFIL. [Concomitant]
     Active Substance: TADALAFIL
  19. IRON [Concomitant]
     Active Substance: IRON
  20. CURCUMIN [Concomitant]
     Active Substance: CURCUMIN
  21. PROBIOTIC [Concomitant]
     Active Substance: PROBIOTICS NOS
  22. VITAMIN D3 [Concomitant]
     Active Substance: CHOLECALCIFEROL

REACTIONS (2)
  - Cough [None]
  - Dry mouth [None]
